FAERS Safety Report 22620375 (Version 1)
Quarter: 2023Q2

REPORT INFORMATION
  Report Type: Spontaneous
  Country: US (occurrence: None)
  Receive Date: 20230616
  Receipt Date: 20230616
  Transmission Date: 20230722
  Serious: No
  Sender: FDA-Public Use
  Company Number: None

PATIENT
  Age: 3 Year
  Sex: Male
  Weight: 18 kg

DRUGS (1)
  1. OXYBUTYNIN [Suspect]
     Active Substance: OXYBUTYNIN
     Indication: Hypertonic bladder
     Dosage: OTHER QUANTITY : 40 ML;?FREQUENCY : TWICE A DAY;?
     Route: 048

REACTIONS (2)
  - Product dispensing error [None]
  - Product availability issue [None]

NARRATIVE: CASE EVENT DATE: 20230616
